FAERS Safety Report 16233471 (Version 6)
Quarter: 2019Q3

REPORT INFORMATION
  Report Type: Report from Study
  Country: US (occurrence: US)
  Receive Date: 20190424
  Receipt Date: 20190712
  Transmission Date: 20191004
  Serious: Yes (Other)
  Sender: FDA-Public Use
  Company Number: PHEH2019US017505

PATIENT
  Sex: Female
  Weight: 80.73 kg

DRUGS (2)
  1. TREPROSTINIL. [Suspect]
     Active Substance: TREPROSTINIL
     Indication: PULMONARY ARTERIAL HYPERTENSION
     Dosage: 76 MG/KG/MIN, CONTINOUS
     Route: 058
     Dates: start: 20190410
  2. TREPROSTINIL. [Suspect]
     Active Substance: TREPROSTINIL
     Dosage: 76 MG/KG/MIN, CONTINOUS (STRENGTH: 1MG/ML)
     Route: 042

REACTIONS (5)
  - Diarrhoea [Unknown]
  - Dyspnoea [Not Recovered/Not Resolved]
  - Breath sounds abnormal [Unknown]
  - Localised infection [Unknown]
  - Lung infection [Unknown]
